FAERS Safety Report 5683437-2 (Version None)
Quarter: 2008Q1

REPORT INFORMATION
  Report Type: 
  Country: None (occurrence: None)
  Receive Date: 20080326
  Receipt Date: 20080317
  Transmission Date: 20080703
  Serious: Yes (Hospitalization)
  Sender: FDA-Public Use
  Company Number: MEDI-0006658

PATIENT
  Age: 2 Month
  Sex: Female
  Weight: 1.715 kg

DRUGS (8)
  1. SYNAGIS [Suspect]
     Dosage: 26 MG : 40 MG : 60 MG : 70 MG : 75 MG
     Dates: start: 20070921, end: 20070921
  2. SYNAGIS [Suspect]
     Dosage: 26 MG : 40 MG : 60 MG : 70 MG : 75 MG
     Dates: start: 20071022
  3. SYNAGIS [Suspect]
     Dosage: 26 MG : 40 MG : 60 MG : 70 MG : 75 MG
     Dates: start: 20071119
  4. SYNAGIS [Suspect]
     Dosage: 26 MG : 40 MG : 60 MG : 70 MG : 75 MG
     Dates: start: 20071217
  5. SYNAGIS [Suspect]
     Dosage: 26 MG : 40 MG : 60 MG : 70 MG : 75 MG
     Dates: start: 20080125
  6. THEOPHYLLINE [Concomitant]
  7. FERRIC HYDROXIDE POLYMALTOSE COMPLEX (FERRIC HYDROXIDE POLYMALTOSE COM [Concomitant]
  8. MULTI-VITAMIN [Concomitant]

REACTIONS (1)
  - FEEDING DISORDER [None]
